FAERS Safety Report 5197188-4 (Version None)
Quarter: 2007Q1

REPORT INFORMATION
  Report Type: 
  Country: None (occurrence: None)
  Receive Date: 20070103
  Receipt Date: 20061222
  Transmission Date: 20070707
  Serious: Yes (Life-Threatening, Hospitalization, Other)
  Sender: FDA-Public Use
  Company Number: US-ELI_LILLY_AND_COMPANY-USA0509107768

PATIENT
  Age: 65 Year
  Sex: Female
  Weight: 113.64 kg

DRUGS (3)
  1. HUMULIN R [Suspect]
     Indication: BLOOD GLUCOSE INCREASED
     Dosage: UNK, UNKNOWN
     Dates: start: 19860101, end: 20050801
  2. HUMULIN R [Suspect]
     Dosage: UNK, UNKNOWN
     Dates: start: 19860101, end: 20050801
  3. HUMALOG [Suspect]
     Indication: BLOOD GLUCOSE INCREASED
     Dosage: UNK, AS NEEDED
     Dates: start: 20050801

REACTIONS (15)
  - ARTHRITIS [None]
  - BLOOD GLUCOSE ABNORMAL [None]
  - BLOOD GLUCOSE FLUCTUATION [None]
  - BLOOD GLUCOSE INCREASED [None]
  - CARTILAGE INJURY [None]
  - CHONDROPATHY [None]
  - COMA [None]
  - EMPHYSEMA [None]
  - GAIT DISTURBANCE [None]
  - LUNG DISORDER [None]
  - MYOCARDIAL INFARCTION [None]
  - RESPIRATORY FAILURE [None]
  - SPEECH DISORDER [None]
  - TREMOR [None]
  - VISUAL ACUITY REDUCED [None]
